FAERS Safety Report 6379471-X (Version None)
Quarter: 2009Q3

REPORT INFORMATION
  Report Type: 
  Country: None (occurrence: None)
  Receive Date: 20090928
  Receipt Date: 20090921
  Transmission Date: 20100115
  Serious: Yes (Life-Threatening)
  Sender: FDA-Public Use
  Company Number: B0594254A

PATIENT
  Age: 9 Year
  Sex: Male
  Weight: 30.6 kg

DRUGS (5)
  1. CEFUROXIME [Suspect]
     Indication: APPENDICITIS
     Route: 042
     Dates: start: 20090824, end: 20090824
  2. METRONIDAZOLE [Suspect]
     Indication: APPENDICITIS
     Route: 042
     Dates: start: 20090824, end: 20090824
  3. PARACETAMOL [Concomitant]
     Indication: PAIN
     Route: 048
     Dates: start: 20090823
  4. IBUPROFEN [Concomitant]
     Indication: PAIN
     Route: 048
     Dates: start: 20090823
  5. PIRITON [Concomitant]
     Route: 048

REACTIONS (2)
  - PHARYNGEAL OEDEMA [None]
  - SWELLING FACE [None]
